FAERS Safety Report 12328411 (Version 3)
Quarter: 2016Q3

REPORT INFORMATION
  Report Type: Spontaneous
  Country: US (occurrence: US)
  Receive Date: 20160503
  Receipt Date: 20160808
  Transmission Date: 20161109
  Serious: No
  Sender: FDA-Public Use
  Company Number: US-BEH-2014041025

PATIENT
  Age: 38 Year
  Sex: Female
  Weight: 114 kg

DRUGS (31)
  1. HIZENTRA [Suspect]
     Active Substance: HUMAN IMMUNOGLOBULIN G
     Route: 058
  2. HYDROCODON-ACETAMINOPHEN [Concomitant]
     Active Substance: ACETAMINOPHEN\HYDROCODONE
  3. IPRATROPIUM BR [Concomitant]
  4. ALL OTHER THERAPEUTIC PRODUCTS [Concomitant]
     Active Substance: UNSPECIFIED INGREDIENT
  5. HIZENTRA [Suspect]
     Active Substance: HUMAN IMMUNOGLOBULIN G
     Indication: HYPOGAMMAGLOBULINAEMIA
     Route: 058
  6. SINGULAIR [Concomitant]
     Active Substance: MONTELUKAST SODIUM
  7. DIOVAN [Concomitant]
     Active Substance: VALSARTAN
  8. RACEMIC EP [Concomitant]
  9. CYMBALTA [Concomitant]
     Active Substance: DULOXETINE HYDROCHLORIDE
  10. RELPAX [Concomitant]
     Active Substance: ELETRIPTAN HYDROBROMIDE
  11. PROMETHAZINE [Concomitant]
     Active Substance: PROMETHAZINE\PROMETHAZINE HYDROCHLORIDE
  12. TAZTIA XT [Concomitant]
     Active Substance: DILTIAZEM HYDROCHLORIDE
  13. ALL OTHER THERAPEUTIC PRODUCTS [Concomitant]
     Active Substance: UNSPECIFIED INGREDIENT
  14. LEVOCETIRIZINE [Concomitant]
     Active Substance: LEVOCETIRIZINE
  15. CELEBREX [Concomitant]
     Active Substance: CELECOXIB
  16. CLONAZEPAM. [Concomitant]
     Active Substance: CLONAZEPAM
  17. TOPAMAX [Concomitant]
     Active Substance: TOPIRAMATE
  18. CLOLAR [Concomitant]
     Active Substance: CLOFARABINE
  19. PANTOPRAZOLE [Concomitant]
     Active Substance: PANTOPRAZOLE SODIUM
  20. HUMULIN NOS [Concomitant]
     Active Substance: INSULIN HUMAN
  21. TORSEMIDE. [Concomitant]
     Active Substance: TORSEMIDE
  22. BUDESONIDE. [Concomitant]
     Active Substance: BUDESONIDE
  23. CETIRIZINE [Concomitant]
     Active Substance: CETIRIZINE HYDROCHLORIDE
  24. DIPHENHYDRAMINE. [Concomitant]
     Active Substance: DIPHENHYDRAMINE
  25. EPIPEN [Concomitant]
     Active Substance: EPINEPHRINE
  26. IPRAT-ALBUT [Concomitant]
  27. SPIRONOLACTONE. [Concomitant]
     Active Substance: SPIRONOLACTONE
  28. DOMPERIDONE [Concomitant]
     Active Substance: DOMPERIDONE
  29. LMX [Concomitant]
     Active Substance: LIDOCAINE
  30. LEVEMIR [Concomitant]
     Active Substance: INSULIN DETEMIR
  31. XOPENEX [Concomitant]
     Active Substance: LEVALBUTEROL HYDROCHLORIDE

REACTIONS (6)
  - Infusion site pain [Recovered/Resolved]
  - Infusion site swelling [Unknown]
  - Incorrect drug administration duration [Unknown]
  - Infusion site erythema [Unknown]
  - Musculoskeletal disorder [Unknown]
  - Infusion site swelling [Recovered/Resolved]

NARRATIVE: CASE EVENT DATE: 201402
